FAERS Safety Report 17768520 (Version 5)
Quarter: 2021Q4

REPORT INFORMATION
  Report Type: Report from Study
  Country: PL (occurrence: PL)
  Receive Date: 20200512
  Receipt Date: 20211202
  Transmission Date: 20220303
  Serious: Yes (Other)
  Sender: FDA-Public Use
  Company Number: PL-AMGEN-POLNI2019198912

PATIENT
  Age: 66 Year
  Sex: Male
  Weight: 74 kg

DRUGS (5)
  1. PANITUMUMAB [Suspect]
     Active Substance: PANITUMUMAB
     Indication: Colorectal cancer metastatic
     Dosage: 450 MILLIGRAM
     Route: 042
     Dates: start: 20180919
  2. BETAMETHASONE VALERATE\FUSIDIC ACID [Concomitant]
     Active Substance: BETAMETHASONE VALERATE\FUSIDIC ACID
     Dosage: 15 UNK
     Route: 061
     Dates: start: 20190108, end: 20190718
  3. FUSACID [Concomitant]
     Dosage: 20 UNK
     Route: 061
     Dates: start: 20190108, end: 20190718
  4. ATOSSA [ONDANSETRON] [Concomitant]
     Indication: Acne
     Dosage: 8 MILLIGRAM
     Route: 048
     Dates: start: 20190110
  5. TETRACYCLINE [Concomitant]
     Active Substance: TETRACYCLINE
     Dosage: 300 MILLIGRAM
     Route: 048
     Dates: start: 20190510

REACTIONS (3)
  - Myelosuppression [Not Recovered/Not Resolved]
  - Neuropathy peripheral [Not Recovered/Not Resolved]
  - Acne [Not Recovered/Not Resolved]

NARRATIVE: CASE EVENT DATE: 20190718
